FAERS Safety Report 9259495 (Version 2)
Quarter: 2013Q2

REPORT INFORMATION
  Report Type: Spontaneous
  Country: US (occurrence: US)
  Receive Date: 20130428
  Receipt Date: 20130523
  Transmission Date: 20140414
  Serious: Yes (Other)
  Sender: FDA-Public Use
  Company Number: US-009507513-1304USA013732

PATIENT
  Sex: 0

DRUGS (1)
  1. TEMODAR [Suspect]
     Route: 048

REACTIONS (1)
  - Convulsion [Unknown]
